FAERS Safety Report 5775902-4 (Version None)
Quarter: 2008Q2

REPORT INFORMATION
  Report Type: 
  Country: None (occurrence: None)
  Receive Date: 20080617
  Receipt Date: 20080605
  Transmission Date: 20081010
  Serious: Yes (Other)
  Sender: FDA-Public Use
  Company Number: JP-PFIZER INC-2008048058

PATIENT
  Sex: Female

DRUGS (3)
  1. CHANTIX [Suspect]
     Dosage: TEXT:BID
     Route: 048
  2. CRESTOR [Concomitant]
     Route: 048
  3. PLETAL [Concomitant]
     Route: 048

REACTIONS (1)
  - FACE OEDEMA [None]
